FAERS Safety Report 13907021 (Version 1)
Quarter: 2017Q3

REPORT INFORMATION
  Report Type: Spontaneous
  Country: ES (occurrence: ES)
  Receive Date: 20170825
  Receipt Date: 20170825
  Transmission Date: 20171127
  Serious: Yes (Other)
  Sender: FDA-Public Use
  Company Number: ES-MYLANLABS-2017M1051642

PATIENT

DRUGS (1)
  1. LEVONORGESTREL MYLAN 1,5 MG COMPRIMIDO EFG [Suspect]
     Active Substance: LEVONORGESTREL
     Indication: POST COITAL CONTRACEPTION
     Dosage: 1,5 MG UNA SOLA VEZ
     Route: 048
     Dates: start: 20160604, end: 20160604

REACTIONS (2)
  - Vulvovaginal candidiasis [Recovered/Resolved]
  - Dysuria [None]

NARRATIVE: CASE EVENT DATE: 20170704
